FAERS Safety Report 8822593 (Version 2)
Quarter: 2013Q1

REPORT INFORMATION
  Report Type: Spontaneous
  Country: FR (occurrence: FR)
  Receive Date: 20121003
  Receipt Date: 20130118
  Transmission Date: 20140127
  Serious: Yes (Hospitalization, Other)
  Sender: FDA-Public Use
  Company Number: FR-ACTELION-A-CH2012-71986

PATIENT
  Age: 13 Year
  Sex: Female
  Weight: 47 kg

DRUGS (7)
  1. TRACLEER [Suspect]
     Indication: PULMONARY ARTERIAL HYPERTENSION
     Dosage: 125 MG, BID
     Route: 048
  2. TRACLEER [Suspect]
     Dosage: 31.25 MG, BID
     Route: 048
     Dates: start: 200401, end: 200702
  3. TRACLEER [Suspect]
     Dosage: 93.75 MG, QD
     Route: 048
     Dates: start: 200702
  4. REVATIO [Suspect]
     Dosage: 20 MG, UNK
  5. REVATIO [Suspect]
     Dosage: 20 MG, BID
  6. REMODULIN [Concomitant]
     Dosage: 70 NG/KG, PER MIN
  7. COUMADINE [Concomitant]

REACTIONS (4)
  - Amaurosis [Recovered/Resolved]
  - Visual acuity reduced [Recovered/Resolved]
  - Headache [Recovered/Resolved]
  - Migraine [Recovered/Resolved]
